FAERS Safety Report 9686216 (Version 2)
Quarter: 2013Q4

REPORT INFORMATION
  Report Type: Spontaneous
  Country: JP (occurrence: JP)
  Receive Date: 20131113
  Receipt Date: 20131113
  Transmission Date: 20140711
  Serious: Yes (Other)
  Sender: FDA-Public Use
  Company Number: PHHY2013JP072710

PATIENT
  Age: 68 Year
  Sex: Male

DRUGS (7)
  1. NEORAL [Suspect]
     Indication: NEPHROTIC SYNDROME
     Dosage: 150 MG, QD
     Route: 048
  2. NEORAL [Interacting]
     Dosage: 100 MG, QD
     Route: 048
  3. ITRACONAZOLE [Interacting]
     Dosage: 200 MG, QD
  4. PREDNISOLONE [Concomitant]
     Dosage: 50 MG, UNK
  5. SULFAMETHOXAZOLE TRIMETHOPRIM [Concomitant]
  6. SODIUM RABEPRAZOLE [Concomitant]
     Dosage: 10 MG, UNK
  7. ALENDRONATE SODIUM HYDRATE [Concomitant]
     Dosage: 35 MG, QW

REACTIONS (4)
  - Cytomegalovirus infection [Recovering/Resolving]
  - Hepatic enzyme increased [Recovering/Resolving]
  - Immunosuppressant drug level increased [Recovered/Resolved]
  - Drug interaction [Unknown]
